FAERS Safety Report 8451469 (Version 2)
Quarter: 2012Q4

REPORT INFORMATION
  Report Type: 
  Country: US (occurrence: US)
  Receive Date: 20120309
  Receipt Date: 20120927
  Transmission Date: 20130627
  Serious: No
  Sender: FDA-Public Use
  Company Number: US-AMGEN-USASP2012002510

PATIENT
  Age: 78 Year
  Sex: Female

DRUGS (12)
  1. PROLIA [Suspect]
     Indication: OSTEOPOROSIS POSTMENOPAUSAL
     Dosage: 60 mg, q6mo
     Dates: start: 20111230
  2. SIMVASTATIN [Concomitant]
     Dosage: UNK
  3. SIMVASTATIN [Concomitant]
  4. VITAMIN D /00107901/ [Concomitant]
     Dosage: UNK
  5. VITAMIN D /00107901/ [Concomitant]
  6. CALCIUM [Concomitant]
     Dosage: UNK
  7. CALCIUM [Concomitant]
  8. FISH OIL [Concomitant]
     Dosage: UNK
  9. VITAMIN B12                        /00056201/ [Concomitant]
     Dosage: UNK
  10. CRANBERRY                          /01512301/ [Concomitant]
     Dosage: UNK
  11. ICAPS [Concomitant]
     Dosage: UNK
  12. PROBIOTIC [Concomitant]
     Indication: DIARRHOEA
     Dosage: UNK

REACTIONS (3)
  - Device failure [Not Recovered/Not Resolved]
  - Diarrhoea [Not Recovered/Not Resolved]
  - Pruritus [Not Recovered/Not Resolved]
